FAERS Safety Report 5156033-3 (Version None)
Quarter: 2006Q4

REPORT INFORMATION
  Report Type: 
  Country: None (occurrence: None)
  Receive Date: 20061114
  Receipt Date: 20061106
  Transmission Date: 20070319
  Serious: Yes (Other)
  Sender: FDA-Public Use
  Company Number: S06-USA-04674-01

PATIENT
  Age: 42 Year
  Sex: Female

DRUGS (1)
  1. CELEXA [Suspect]
     Dosage: 40 MG QD PO
     Route: 048

REACTIONS (2)
  - RETINAL EXUDATES [None]
  - RETINAL INFARCTION [None]
